FAERS Safety Report 7061031-9 (Version None)
Quarter: 2010Q4

REPORT INFORMATION
  Report Type: 
  Country: None (occurrence: None)
  Receive Date: 20101026
  Receipt Date: 20101018
  Transmission Date: 20110411
  Serious: Yes (Other)
  Sender: FDA-Public Use
  Company Number: BR-PFIZER INC-2010132258

PATIENT
  Age: 52 Year
  Sex: Male

DRUGS (6)
  1. LIPITOR [Suspect]
     Indication: HYPERCHOLESTEROLAEMIA
     Dosage: 10 MG, 1X/DAY
     Route: 048
  2. LIPITOR [Suspect]
     Dosage: 20 MG, 1X/DAY
     Route: 048
     Dates: end: 20101001
  3. ATORVASTATIN [Suspect]
     Dosage: 5 MG, UNK
  4. CAPOTEN [Concomitant]
     Indication: HYPERTENSION
     Dosage: 12 MG, UNK
  5. GLIFAGE XR [Concomitant]
     Indication: GLYCOSYLATED HAEMOGLOBIN INCREASED
     Dosage: UNK
  6. GLIFAGE XR [Concomitant]
     Dosage: 1 G, UNK

REACTIONS (28)
  - ARRHYTHMIA [None]
  - AUTONOMIC NERVOUS SYSTEM IMBALANCE [None]
  - BLOOD AMYLASE INCREASED [None]
  - BLOOD CHOLESTEROL INCREASED [None]
  - BLOOD GLUCOSE INCREASED [None]
  - BLOOD TRIGLYCERIDES DECREASED [None]
  - BLOOD TRIGLYCERIDES INCREASED [None]
  - BRONCHITIS [None]
  - CEREBROVASCULAR ACCIDENT [None]
  - DEAFNESS NEUROSENSORY [None]
  - FLUID RETENTION [None]
  - FORMICATION [None]
  - GLIOSIS [None]
  - GLUCOSE TOLERANCE IMPAIRED [None]
  - GLYCOSYLATED HAEMOGLOBIN INCREASED [None]
  - HYPERTENSION [None]
  - HYPOGLYCAEMIA [None]
  - HYPOTENSION [None]
  - LABYRINTHITIS [None]
  - MENINGISM [None]
  - NAUSEA [None]
  - NEURITIS [None]
  - NEUROPATHY PERIPHERAL [None]
  - SENSORY DISTURBANCE [None]
  - SYNCOPE [None]
  - TINNITUS [None]
  - TRANSAMINASES INCREASED [None]
  - VOMITING [None]
